FAERS Safety Report 6186619-9 (Version None)
Quarter: 2009Q2

REPORT INFORMATION
  Report Type: 
  Country: None (occurrence: None)
  Receive Date: 20090512
  Receipt Date: 20090430
  Transmission Date: 20091009
  Serious: Yes (Disabling, Other)
  Sender: FDA-Public Use
  Company Number: FR-PFIZER INC-2008079184

PATIENT
  Age: 41 Year

DRUGS (7)
  1. SUNITINIB MALATE [Suspect]
     Indication: BREAST CANCER
     Dosage: 37.5 MG, 1X/DAY
     Route: 048
     Dates: start: 20080722, end: 20080820
  2. *CAPECITABINE [Suspect]
     Indication: BREAST CANCER
     Dosage: 1500 MG, 2X/DAY, DAY 1-14, EVERY 3 WKS
     Route: 048
     Dates: start: 20080722, end: 20080819
  3. *CAPECITABINE [Suspect]
     Dosage: 1500 MG, 1X/DAY
     Route: 048
     Dates: start: 20080820, end: 20080820
  4. *CAPECITABINE [Suspect]
     Dosage: 1150 MG, 1X/DAY
     Route: 048
     Dates: start: 20080908, end: 20080908
  5. *CAPECITABINE [Suspect]
     Dosage: 2300 MG, 1X/DAY,DAY 1-14, EVERY 3 WKS
     Route: 048
     Dates: start: 20080909, end: 20080916
  6. *CAPECITABINE [Suspect]
     Dosage: 1150 MG, 1X/DAY
     Route: 048
     Dates: start: 20080917, end: 20080917
  7. ZOLADEX [Concomitant]
     Dosage: UNK
     Dates: start: 20020101

REACTIONS (1)
  - RENAL INFARCT [None]
